FAERS Safety Report 5523159-1 (Version None)
Quarter: 2007Q4

REPORT INFORMATION
  Report Type: 
  Country: None (occurrence: None)
  Receive Date: 20071116
  Receipt Date: 20071110
  Transmission Date: 20080405
  Serious: Yes (Other)
  Sender: FDA-Public Use
  Company Number: CHPA2007US12085

PATIENT
  Age: 77 Year
  Sex: Female

DRUGS (1)
  1. BENEFIBER FIBER SUPP          VIT B + FOLIC ACID               (WHEAT [Suspect]
     Indication: GASTROINTESTINAL HYPOMOTILITY
     Dosage: 3 DF; TID; ORAL
     Route: 048
     Dates: start: 20071108, end: 20071109

REACTIONS (1)
  - CONSTIPATION [None]
